FAERS Safety Report 23124422 (Version 1)
Quarter: 2023Q4

REPORT INFORMATION
  Report Type: Spontaneous
  Country: US (occurrence: US)
  Receive Date: 20231030
  Receipt Date: 20231030
  Transmission Date: 20240110
  Serious: Yes (Other)
  Sender: FDA-Public Use
  Company Number: US-FreseniusKabi-FK202317084

PATIENT
  Age: 75 Year
  Sex: Male
  Weight: 73 kg

DRUGS (4)
  1. BUPIVACAINE [Suspect]
     Active Substance: BUPIVACAINE
     Indication: Pain
     Dosage: 300 MG (40 ML OF A 0.75 PERCENT SOLUTION) DILUTED IN 100 ML 0.9 PERCENT SODIUM CHLORIDE TO A TOTAL V
     Route: 052
  2. KETOROLAC [Concomitant]
     Active Substance: KETOROLAC TROMETHAMINE
     Indication: Pain
  3. MORPHINE [Concomitant]
     Active Substance: MORPHINE
     Indication: Pain
  4. SODIUM CHLORIDE [Concomitant]
     Active Substance: SODIUM CHLORIDE
     Indication: Product used for unknown indication
     Dosage: BUPIVACAINE 300 MG (40 ML OF A 0.75 PERCENT SOLUTION) DILUTED IN 100 ML. 0.9 PERCENT SODIUM CHLORIDE

REACTIONS (5)
  - Bradycardia [Recovering/Resolving]
  - Toxicity to various agents [Unknown]
  - Hyperhidrosis [Unknown]
  - Somnolence [Recovering/Resolving]
  - Hypotension [Recovered/Resolved]
